FAERS Safety Report 5003913-5 (Version None)
Quarter: 2006Q2

REPORT INFORMATION
  Report Type: 
  Country: None (occurrence: None)
  Receive Date: 20060517
  Receipt Date: 20060505
  Transmission Date: 20061013
  Serious: Yes (Other)
  Sender: FDA-Public Use
  Company Number: PHNU2006AU01949

PATIENT
  Sex: Female

DRUGS (2)
  1. LAMISIL [Suspect]
     Indication: ONYCHOMYCOSIS
  2. SINEMET [Suspect]
     Indication: PARKINSON'S DISEASE

REACTIONS (3)
  - DIZZINESS [None]
  - SYNCOPE [None]
  - TACHYCARDIA [None]
